FAERS Safety Report 18801865 (Version 4)
Quarter: 2021Q1

REPORT INFORMATION
  Report Type: Spontaneous
  Country: RO (occurrence: RO)
  Receive Date: 20210128
  Receipt Date: 20210312
  Transmission Date: 20210419
  Serious: Yes (Other)
  Sender: FDA-Public Use
  Company Number: NVSC2021RO019650

PATIENT
  Age: 41 Year
  Sex: Male

DRUGS (2)
  1. COSENTYX [Suspect]
     Active Substance: SECUKINUMAB
     Indication: ANKYLOSING SPONDYLITIS
     Dosage: 150 MG, QW (1 INJ IN WEEK 0, 1,2,3)
     Route: 058
  2. COSENTYX [Suspect]
     Active Substance: SECUKINUMAB
     Dosage: 150 MG, QMO (1 INJEC STARTING WITH WEEK 4)
     Route: 058
     Dates: start: 201911

REACTIONS (5)
  - Eye inflammation [Unknown]
  - Foreign body sensation in eyes [Unknown]
  - Ocular hyperaemia [Unknown]
  - Uveitis [Recovered/Resolved]
  - Vision blurred [Unknown]

NARRATIVE: CASE EVENT DATE: 202001
